FAERS Safety Report 17506625 (Version 1)
Quarter: 2020Q1

REPORT INFORMATION
  Report Type: Spontaneous
  Country: US (occurrence: US)
  Receive Date: 20200305
  Receipt Date: 20200305
  Transmission Date: 20200409
  Serious: No
  Sender: FDA-Public Use
  Company Number: US-ROCHE-2456926

PATIENT
  Sex: Female

DRUGS (1)
  1. XOLAIR [Suspect]
     Active Substance: OMALIZUMAB
     Indication: URTICARIA CONTACT
     Dosage: FORM STRENGTH: 150 MG/ML
     Route: 058
     Dates: start: 20190925

REACTIONS (2)
  - Injection site irritation [Unknown]
  - Injection site pain [Unknown]
